FAERS Safety Report 11829179 (Version 4)
Quarter: 2018Q4

REPORT INFORMATION
  Report Type: Spontaneous
  Country: JP (occurrence: JP)
  Receive Date: 20151211
  Receipt Date: 20181114
  Transmission Date: 20190204
  Serious: Yes (Other)
  Sender: FDA-Public Use
  Company Number: JP-PFIZER INC-2015422121

PATIENT
  Age: 71 Year
  Sex: Male

DRUGS (4)
  1. FLUOROURACIL. [Suspect]
     Active Substance: FLUOROURACIL
     Indication: RECTAL CANCER
     Dosage: 400 MG/M2 2 HOURS
     Route: 040
     Dates: start: 20061218
  2. FLUOROURACIL. [Suspect]
     Active Substance: FLUOROURACIL
     Dosage: 2400 MG/M2 46 HOURS
     Route: 042
     Dates: start: 20061218
  3. IRINOTECAN HCL [Suspect]
     Active Substance: IRINOTECAN HYDROCHLORIDE
     Indication: RECTAL CANCER
     Dosage: 180 MG/M2 2 HOURS
     Route: 042
     Dates: start: 20061218
  4. LEVOLEUCOVORIN CALCIUM. [Suspect]
     Active Substance: LEVOLEUCOVORIN CALCIUM
     Indication: RECTAL CANCER
     Dosage: 200 MG/M2, 2 HOURS
     Route: 042
     Dates: start: 20061218

REACTIONS (1)
  - Bone marrow failure [Unknown]
